FAERS Safety Report 4716050-1 (Version None)
Quarter: 2005Q3

REPORT INFORMATION
  Report Type: 
  Country: None (occurrence: None)
  Receive Date: 20050718
  Receipt Date: 20050519
  Transmission Date: 20060218
  Serious: Yes (Death, Hospitalization, Other)
  Sender: FDA-Public Use
  Company Number: FR-BRISTOL-MYERS SQUIBB COMPANY-12976833

PATIENT
  Age: 65 Year
  Sex: Male
  Weight: 63 kg

DRUGS (12)
  1. PERFALGAN [Suspect]
  2. AMIKLIN POWDER [Suspect]
     Route: 048
     Dates: start: 20050331, end: 20050404
  3. DEPAKENE [Suspect]
     Dates: start: 20050404, end: 20050417
  4. CALCIPARINE [Suspect]
  5. TAZOCILLINE [Suspect]
     Dates: start: 20050331, end: 20050404
  6. TRIFLUCAN [Suspect]
     Dates: start: 20050331, end: 20050407
  7. NEORECORMON [Suspect]
     Route: 058
  8. LASIX [Suspect]
  9. CALCIDIA [Suspect]
  10. SPECIAFOLDINE [Suspect]
  11. TARDYFERON [Suspect]
  12. TOPALGIC [Suspect]
     Dates: end: 20050404

REACTIONS (6)
  - BLOOD ALKALINE PHOSPHATASE INCREASED [None]
  - CHOLESTASIS [None]
  - CONVULSION [None]
  - GAMMA-GLUTAMYLTRANSFERASE INCREASED [None]
  - HAEMOLYTIC ANAEMIA [None]
  - OVERDOSE [None]
